FAERS Safety Report 9326214 (Version 1)
Quarter: 2013Q2

REPORT INFORMATION
  Report Type: Spontaneous
  Country: US (occurrence: US)
  Receive Date: 20130604
  Receipt Date: 20130604
  Transmission Date: 20140414
  Serious: Yes (Hospitalization)
  Sender: FDA-Public Use
  Company Number: US-PFIZER INC-2013169004

PATIENT
  Sex: Female

DRUGS (8)
  1. LYRICA [Suspect]
     Indication: PAIN
     Dosage: 100 MG, 3X/DAY
     Route: 048
  2. LYRICA [Suspect]
     Indication: FEELING OF RELAXATION
  3. RANEXA [Concomitant]
     Dosage: UNK
  4. OXYCONTIN [Concomitant]
     Dosage: UNK
  5. CYMBALTA [Concomitant]
     Dosage: UNK
  6. WARFARIN [Concomitant]
     Dosage: UNK
  7. SEROQUEL [Concomitant]
     Dosage: UNK
  8. AMBIEN [Concomitant]
     Dosage: UNK

REACTIONS (3)
  - Pulmonary thrombosis [Unknown]
  - Thrombosis [Unknown]
  - Fatigue [Unknown]
